FAERS Safety Report 13797747 (Version 2)
Quarter: 2017Q3

REPORT INFORMATION
  Report Type: Report from Study
  Country: None (occurrence: US)
  Receive Date: 20170727
  Receipt Date: 20170731
  Transmission Date: 20171127
  Serious: Yes (Hospitalization, Other)
  Sender: FDA-Public Use
  Company Number: US-ABBVIE-17K-163-2049571-00

PATIENT
  Age: 54 Year
  Sex: Female
  Weight: 60.38 kg

DRUGS (1)
  1. HUMIRA [Suspect]
     Active Substance: ADALIMUMAB
     Indication: CROHN^S DISEASE
     Route: 058
     Dates: start: 2012

REACTIONS (8)
  - Abdominal adhesions [Recovered/Resolved]
  - Post procedural complication [Not Recovered/Not Resolved]
  - Drug ineffective [Unknown]
  - Weight decreased [Not Recovered/Not Resolved]
  - Post procedural complication [Not Recovered/Not Resolved]
  - Intestinal obstruction [Recovered/Resolved]
  - Faeces discoloured [Recovered/Resolved]
  - Seroma [Recovering/Resolving]

NARRATIVE: CASE EVENT DATE: 20170510
